FAERS Safety Report 12501263 (Version 1)
Quarter: 2016Q2

REPORT INFORMATION
  Report Type: Spontaneous
  Country: US (occurrence: US)
  Receive Date: 20160627
  Receipt Date: 20160627
  Transmission Date: 20160815
  Serious: Yes (Other)
  Sender: FDA-Public Use
  Company Number: US-MAYNE PHARMA INC.-2016MYN000381

PATIENT
  Age: 16 Year
  Sex: Female

DRUGS (2)
  1. DOXYCYCLINE HYCLATE DELAYED-REL TABLET [Suspect]
     Active Substance: DOXYCYCLINE HYCLATE
     Indication: ACNE
     Dosage: 150 MG FOR 3 MONTHS
     Route: 048
  2. MINOCYCLINE [Suspect]
     Active Substance: MINOCYCLINE\MINOCYCLINE HYDROCHLORIDE
     Indication: ACNE
     Dosage: 200 MG, UNK

REACTIONS (2)
  - Diplopia [None]
  - Hyperthyroidism [Recovered/Resolved]
